FAERS Safety Report 9703155 (Version 1)
Quarter: 2013Q4

REPORT INFORMATION
  Report Type: Spontaneous
  Country: US (occurrence: US)
  Receive Date: 20131122
  Receipt Date: 20131122
  Transmission Date: 20140711
  Serious: No
  Sender: FDA-Public Use
  Company Number: US-BIOGENIDEC-2013BI110648

PATIENT
  Sex: Male

DRUGS (1)
  1. TYSABRI [Suspect]
     Indication: MULTIPLE SCLEROSIS
     Route: 042
     Dates: start: 20121228

REACTIONS (7)
  - Dementia [Unknown]
  - Fall [Unknown]
  - Amnesia [Unknown]
  - Confusional state [Unknown]
  - Cognitive disorder [Unknown]
  - Asthenia [Unknown]
  - Multiple sclerosis [Unknown]
